FAERS Safety Report 22706751 (Version 4)
Quarter: 2023Q4

REPORT INFORMATION
  Report Type: Other
  Country: US (occurrence: None)
  Receive Date: 20230714
  Receipt Date: 20231109
  Transmission Date: 20240109
  Serious: Yes (Other)
  Sender: FDA-Public Use
  Company Number: US-ROCHE-3386006

PATIENT
  Age: 40 Year
  Sex: Female
  Weight: 68 kg

DRUGS (7)
  1. OCREVUS [Suspect]
     Active Substance: OCRELIZUMAB
     Indication: Relapsing multiple sclerosis
     Dosage: MOST RECENT DOSE WAS IN APR/2023 AND NEXT INFUSION IS IN OCT/2023.
     Route: 042
  2. SYMMETREL [Concomitant]
     Active Substance: AMANTADINE HYDROCHLORIDE
     Route: 048
     Dates: start: 20230614
  3. PROVIGIL [Concomitant]
     Active Substance: MODAFINIL
     Dates: start: 20230227
  4. MACRODANTIN [Concomitant]
     Active Substance: NITROFURANTOIN
     Dates: start: 20220825
  5. MACROBID [Concomitant]
     Active Substance: NITROFURANTOIN\NITROFURANTOIN MONOHYDRATE
     Route: 048
  6. VALIUM [Concomitant]
     Active Substance: DIAZEPAM
  7. AMANTADINE [Concomitant]
     Active Substance: AMANTADINE
     Route: 048
     Dates: start: 20230614

REACTIONS (15)
  - Urinary tract infection [Unknown]
  - Maternal exposure before pregnancy [Unknown]
  - Blood immunoglobulin G decreased [Unknown]
  - Blood immunoglobulin M decreased [Unknown]
  - Blood immunoglobulin A decreased [Unknown]
  - Mean cell haemoglobin concentration increased [Unknown]
  - Mean platelet volume increased [Unknown]
  - Oral herpes [Unknown]
  - Illness [Unknown]
  - Cystitis [Unknown]
  - Hypoacusis [Unknown]
  - Tympanic membrane perforation [Unknown]
  - Peroneal nerve palsy [Unknown]
  - Sleep deficit [Unknown]
  - Asthenia [Unknown]
